FAERS Safety Report 17370927 (Version 3)
Quarter: 2020Q3

REPORT INFORMATION
  Report Type: Spontaneous
  Country: FR (occurrence: FR)
  Receive Date: 20200205
  Receipt Date: 20200731
  Transmission Date: 20201102
  Serious: Yes (Hospitalization, Disabling, Other)
  Sender: FDA-Public Use
  Company Number: FR-TEVA-2020-FR-1181137

PATIENT
  Age: 54 Year
  Sex: Female
  Weight: 130 kg

DRUGS (2)
  1. COPAXONE [Suspect]
     Active Substance: GLATIRAMER ACETATE
     Indication: MULTIPLE SCLEROSIS
     Route: 065
     Dates: start: 2017
  2. LAROXYL [Concomitant]
     Active Substance: AMITRIPTYLINE HYDROCHLORIDE
     Dosage: 50 MG AT THE POSOLOGY OF ONE DOSAGE FORM PER WEEK BY ORAL ROUTE
     Route: 048

REACTIONS (5)
  - Autonomic nervous system imbalance [Unknown]
  - Abscess [Recovered/Resolved]
  - Infection [Unknown]
  - Gait inability [Not Recovered/Not Resolved]
  - Biliary colic [Unknown]

NARRATIVE: CASE EVENT DATE: 20200122
